FAERS Safety Report 7241256-X (Version None)
Quarter: 2011Q1

REPORT INFORMATION
  Report Type: 
  Country: None (occurrence: None)
  Receive Date: 20110124
  Receipt Date: 20110114
  Transmission Date: 20110831
  Serious: Yes (Hospitalization)
  Sender: FDA-Public Use
  Company Number: A0898142A

PATIENT
  Sex: Female
  Weight: 107.7 kg

DRUGS (8)
  1. METHOTREXATE [Concomitant]
  2. PLAQUENIL [Concomitant]
  3. AVANDIA [Suspect]
     Indication: DIABETES MELLITUS
     Dosage: 4MG PER DAY
     Route: 048
     Dates: start: 20000919, end: 20031110
  4. LIPITOR [Concomitant]
  5. MONOPRIL [Concomitant]
  6. HYDROCHLOROTHIAZIDE [Concomitant]
  7. GLUCOTROL XL [Concomitant]
  8. VIOXX [Concomitant]

REACTIONS (3)
  - CARDIAC FAILURE CONGESTIVE [None]
  - CARDIAC DISORDER [None]
  - CARDIOVASCULAR DISORDER [None]
